FAERS Safety Report 18204190 (Version 1)
Quarter: 2020Q3

REPORT INFORMATION
  Report Type: Spontaneous
  Country: US (occurrence: US)
  Receive Date: 20200828
  Receipt Date: 20200828
  Transmission Date: 20201103
  Serious: Yes (Disabling, Other)
  Sender: FDA-Public Use
  Company Number: US-SA-2020SA224941

PATIENT

DRUGS (4)
  1. RANITIDINE HYDROCHLORIDE. [Suspect]
     Active Substance: RANITIDINE HYDROCHLORIDE
     Indication: DYSPEPSIA
  2. RANITIDINE HYDROCHLORIDE. [Suspect]
     Active Substance: RANITIDINE HYDROCHLORIDE
     Indication: ANTACID THERAPY
     Dosage: 2 DF, QD
     Dates: start: 2011, end: 2014
  3. ZANTAC 150 (RANITIDINE HYDROCHLORIDE) [Suspect]
     Active Substance: RANITIDINE HYDROCHLORIDE
     Indication: ANTACID THERAPY
     Dosage: 3 DF, QW
     Dates: start: 2008, end: 2015
  4. ZANTAC 150 (RANITIDINE HYDROCHLORIDE) [Suspect]
     Active Substance: RANITIDINE HYDROCHLORIDE
     Indication: DYSPEPSIA

REACTIONS (16)
  - Illness [Unknown]
  - Disturbance in attention [Unknown]
  - Loss of personal independence in daily activities [Unknown]
  - Pain [Unknown]
  - Renal cell carcinoma [Unknown]
  - Anxiety [Unknown]
  - Mental status changes [Unknown]
  - Malaise [Unknown]
  - Sleep disorder [Unknown]
  - Psychiatric symptom [Unknown]
  - Emotional distress [Unknown]
  - Physical disability [Unknown]
  - Life expectancy shortened [Unknown]
  - Depression [Unknown]
  - Asthenia [Unknown]
  - Discomfort [Unknown]

NARRATIVE: CASE EVENT DATE: 201506
